FAERS Safety Report 17036201 (Version 1)
Quarter: 2019Q4

REPORT INFORMATION
  Report Type: Spontaneous
  Country: US (occurrence: US)
  Receive Date: 20191114
  Receipt Date: 20191114
  Transmission Date: 20200122
  Serious: Yes (Other)
  Sender: FDA-Public Use
  Company Number: None

PATIENT
  Age: 47 Year
  Sex: Male
  Weight: 95.5 kg

DRUGS (22)
  1. CEFAZOLIN [Concomitant]
     Active Substance: CEFAZOLIN
     Dates: start: 20191112, end: 20191112
  2. MIDAZOLAM [Concomitant]
     Active Substance: MIDAZOLAM HYDROCHLORIDE
     Dates: start: 20191110, end: 20191114
  3. DOBUTAMINE [Suspect]
     Active Substance: DOBUTAMINE HYDROCHLORIDE
     Indication: CARDIOGENIC SHOCK
     Dosage: ?          OTHER FREQUENCY:5 MCG/KG/MIN;?
     Route: 041
     Dates: start: 20191112, end: 20191112
  4. FENTANYL. [Concomitant]
     Active Substance: FENTANYL
     Dates: start: 20191110, end: 20191114
  5. NICARDIPINE [Concomitant]
     Active Substance: NICARDIPINE
     Dates: start: 20191110, end: 20191114
  6. PROPOFOL. [Concomitant]
     Active Substance: PROPOFOL
     Dates: start: 20191110, end: 20191114
  7. ASPIRIN. [Concomitant]
     Active Substance: ASPIRIN
     Dates: start: 20191110, end: 20191114
  8. ACETAMINOPHEN INJECTION [Concomitant]
     Active Substance: ACETAMINOPHEN
     Dates: start: 20191110, end: 20191114
  9. CLOPIDOGREL [Concomitant]
     Active Substance: CLOPIDOGREL BISULFATE
     Dates: start: 20191110, end: 20191114
  10. ALBUMIN [Concomitant]
     Active Substance: ALBUMIN HUMAN
     Dates: start: 20191110, end: 20191114
  11. AMIODARONE [Concomitant]
     Active Substance: AMIODARONE
     Dates: start: 20191110, end: 20191114
  12. BUMETANIDE. [Concomitant]
     Active Substance: BUMETANIDE
     Dates: start: 20191111, end: 20191114
  13. CALCIUM CHLORIDE. [Concomitant]
     Active Substance: CALCIUM CHLORIDE
     Dates: start: 20191112, end: 20191112
  14. CISATRACURIUM. [Concomitant]
     Active Substance: CISATRACURIUM
     Dates: start: 20191110, end: 20191114
  15. DEXMEDETOMIDINE. [Concomitant]
     Active Substance: DEXMEDETOMIDINE
     Dates: start: 20191112, end: 20191114
  16. FAMOTIDINE. [Concomitant]
     Active Substance: FAMOTIDINE
     Dates: start: 20191110, end: 20191114
  17. HEPARIN [Concomitant]
     Active Substance: HEPARIN SODIUM
     Dates: start: 20191110, end: 20191114
  18. INSULIN [Concomitant]
     Active Substance: INSULIN NOS
     Dates: start: 20191110, end: 20191114
  19. NITROGLYCERIN. [Concomitant]
     Active Substance: NITROGLYCERIN
     Dates: start: 20191110, end: 20191114
  20. CEFTRIAXONE. [Concomitant]
     Active Substance: CEFTRIAXONE
     Dates: start: 20191110, end: 20191114
  21. EPINEPHRINE. [Concomitant]
     Active Substance: EPINEPHRINE
     Dates: start: 20191110, end: 20191114
  22. MILRINONE [Concomitant]
     Active Substance: MILRINONE
     Dates: start: 20191111, end: 20191114

REACTIONS (2)
  - Blood pressure systolic increased [None]
  - Heart rate increased [None]

NARRATIVE: CASE EVENT DATE: 20191112
